FAERS Safety Report 7560260-5 (Version None)
Quarter: 2011Q2

REPORT INFORMATION
  Report Type: 
  Country: None (occurrence: None)
  Receive Date: 20110614
  Receipt Date: 20110531
  Transmission Date: 20111010
  Serious: Yes (Death, Life-Threatening)
  Sender: FDA-Public Use
  Company Number: AUR-APL-2010-02814

PATIENT
  Age: 61 Year
  Sex: Male

DRUGS (23)
  1. ANIDULAFUNGIN;PLACEBO (CODE NOT BROKEN) [Suspect]
     Indication: ASPERGILLOSIS
     Dosage: (1 IN 1 D), INTRAVNEOUS
     Route: 042
     Dates: start: 20101030, end: 20101030
  2. REMERGIL (MIRTAZAPINE) [Suspect]
     Indication: DEPRESSION
     Dosage: 15 MG (15 MG,1 IN 1 D), ORAL
     Route: 048
     Dates: start: 20101028, end: 20101103
  3. MEROPENEM [Concomitant]
  4. NORVASC [Concomitant]
  5. ACYCLOVIR [Suspect]
     Indication: PROPHYLAXIS
     Dosage: 400 MG (400 MG,1 IN 1 D), ORAL
     Route: 048
     Dates: start: 20101007, end: 20101103
  6. ALLOPURINOL [Suspect]
     Indication: PROPHYLAXIS
     Dosage: 300 MG (300 MG,1 IN 1 D), ORAL
     Route: 048
     Dates: end: 20101103
  7. METOCLOPRAMIDE [Concomitant]
  8. NOVALGIN (NOVO-PETRIN) [Concomitant]
  9. GRANOCYTE (LENOGRASTIM) [Concomitant]
  10. TAZOBAC (PIP/TAZO) [Concomitant]
  11. JONOSTERIL (JONOSTEROL /00351401/) [Concomitant]
  12. PANTOPRAZOLE SODIUM [Concomitant]
  13. VFEND [Suspect]
     Indication: ASPERGILLOSIS
     Dosage: 400 MG (200 MG,2 IN 1 D), ORAL
     Route: 048
     Dates: start: 20101103, end: 20101103
  14. VANCOMYCIN [Concomitant]
  15. METFORMIN HCL [Suspect]
     Indication: DIABETES MELLITUS
     Dosage: 2550 MG (850 MG,3 IN 1 D), ORAL
     Route: 048
     Dates: end: 20101103
  16. FUROSEMIDE [Concomitant]
  17. VFEND [Suspect]
     Indication: ASPERGILLOSIS
     Dosage: 776 MG (388 MG,2 IN 1 D), INTRAVEOUS; 776 MG (388 MG,2 IN 1 D), INTRAVNEOUS; 388 MG (388 MG,1 IN 1 D
     Route: 042
     Dates: start: 20101031, end: 20101103
  18. VFEND [Suspect]
     Indication: ASPERGILLOSIS
     Dosage: 776 MG (388 MG,2 IN 1 D), INTRAVEOUS; 776 MG (388 MG,2 IN 1 D), INTRAVNEOUS; 388 MG (388 MG,1 IN 1 D
     Route: 042
     Dates: start: 20101030, end: 20101102
  19. VFEND [Suspect]
     Indication: ASPERGILLOSIS
     Dosage: 776 MG (388 MG,2 IN 1 D), INTRAVEOUS; 776 MG (388 MG,2 IN 1 D), INTRAVNEOUS; 388 MG (388 MG,1 IN 1 D
     Route: 042
     Dates: start: 20101103, end: 20101103
  20. KALINOR-BRAUSETABLETTEN (KALINOR-BRAUSETABLETTEN) [Concomitant]
  21. METOHEXAL (METOPROLOL TARTRATE) [Concomitant]
  22. CLINDAMYCIN [Concomitant]
  23. ISOPHANE INSULIN [Concomitant]

REACTIONS (11)
  - RENAL FAILURE ACUTE [None]
  - DISEASE PROGRESSION [None]
  - ACTIVATED PARTIAL THROMBOPLASTIN TIME PROLONGED [None]
  - NEPHROPATHY TOXIC [None]
  - PULMONARY OEDEMA [None]
  - PULMONARY CONGESTION [None]
  - CARDIOVASCULAR DISORDER [None]
  - COAGULOPATHY [None]
  - SEPSIS [None]
  - BLOOD BICARBONATE DECREASED [None]
  - LUNG INFILTRATION [None]
